FAERS Safety Report 4540158-7 (Version None)
Quarter: 2004Q4

REPORT INFORMATION
  Report Type: 
  Country: None (occurrence: None)
  Receive Date: 20041222
  Receipt Date: 20041202
  Transmission Date: 20050328
  Serious: Yes (Hospitalization)
  Sender: FDA-Public Use
  Company Number: JP_041105223

PATIENT
  Age: 65 Year
  Sex: Female
  Weight: 70 kg

DRUGS (11)
  1. ZYPREXA [Suspect]
     Indication: DEPRESSION
     Dosage: 10 MG DAY
     Dates: start: 20040312, end: 20041007
  2. PREDNISOLONE [Concomitant]
  3. LAXOBERON (SODIUM PICOSULFATE) [Concomitant]
  4. ASPIRIN [Concomitant]
  5. DEPAKENE [Concomitant]
  6. MAGLAX (MAGNESIUM OXIDE) [Concomitant]
  7. SEPAZON (CLOXAZOLAM) [Concomitant]
  8. LEVOTOMIN (LEVOMEPROMAZINE MALEATE) [Concomitant]
  9. DORAL [Concomitant]
  10. ZOLPIDEM TARTRATE [Concomitant]
  11. PURSENNID [Concomitant]

REACTIONS (5)
  - DIABETES MELLITUS [None]
  - DIFFICULTY IN WALKING [None]
  - FALL [None]
  - NAUSEA [None]
  - VOMITING [None]
